FAERS Safety Report 13406807 (Version 2)
Quarter: 2017Q2

REPORT INFORMATION
  Report Type: Spontaneous
  Country: US (occurrence: US)
  Receive Date: 20170405
  Receipt Date: 20170417
  Transmission Date: 20170830
  Serious: Yes (Hospitalization)
  Sender: FDA-Public Use
  Company Number: US-BAYER-2016-062779

PATIENT
  Age: 60 Year
  Sex: Female
  Weight: 54.42 kg

DRUGS (8)
  1. ADEMPAS [Suspect]
     Active Substance: RIOCIGUAT
     Indication: PULMONARY ARTERIAL HYPERTENSION
     Dosage: 2.5 MG, TID
     Route: 048
     Dates: start: 20150324
  2. OPSUMIT [Suspect]
     Active Substance: MACITENTAN
     Indication: PULMONARY HYPERTENSION
     Dosage: 10 MG, QD
     Route: 048
     Dates: start: 20160205
  3. VENTAVIS [Suspect]
     Active Substance: ILOPROST
     Indication: PULMONARY HYPERTENSION
     Dosage: 2.5 ?G, 6-9XDAILY
     Route: 055
  4. VENTAVIS [Suspect]
     Active Substance: ILOPROST
     Indication: PULMONARY HYPERTENSION
     Dosage: 2.5 ?G, 6X/DAY
     Route: 055
     Dates: start: 20080521
  5. VENTAVIS [Suspect]
     Active Substance: ILOPROST
     Indication: PULMONARY HYPERTENSION
     Dosage: 5 ?G, UNK
     Route: 055
  6. COUMADIN [Concomitant]
     Active Substance: WARFARIN SODIUM
     Dosage: UNK
  7. VENTAVIS [Suspect]
     Active Substance: ILOPROST
     Indication: PULMONARY HYPERTENSION
     Dosage: 5 ?G, 6-9X/DAY
     Route: 055
     Dates: start: 20080521
  8. DILTIAZEM HYDROCHLORIDE. [Concomitant]
     Active Substance: DILTIAZEM HYDROCHLORIDE
     Dosage: UNK

REACTIONS (22)
  - Vertigo [Recovered/Resolved]
  - Dyspnoea exertional [Unknown]
  - Sickle cell anaemia [Unknown]
  - Blood count abnormal [Unknown]
  - Haemoglobin decreased [None]
  - Gait disturbance [Unknown]
  - Transfusion [None]
  - Exercise tolerance decreased [Unknown]
  - Dyspnoea [Unknown]
  - Palpitations [Unknown]
  - Abdominal distension [Unknown]
  - Heart rate abnormal [Unknown]
  - Pneumonia [Recovered/Resolved]
  - Sickle cell anaemia with crisis [Recovered/Resolved]
  - Fluid retention [Unknown]
  - Dizziness [Recovered/Resolved]
  - Pain [Unknown]
  - Cough [Unknown]
  - Chest pain [Unknown]
  - Hypotension [Unknown]
  - Fatigue [Unknown]
  - Peripheral swelling [Unknown]

NARRATIVE: CASE EVENT DATE: 201603
